FAERS Safety Report 8181660-9 (Version None)
Quarter: 2012Q1

REPORT INFORMATION
  Report Type: 
  Country: None (occurrence: None)
  Receive Date: 20120301
  Receipt Date: 20120301
  Transmission Date: 20120608
  Serious: No
  Sender: FDA-Public Use
  Company Number: None

PATIENT
  Sex: Female
  Weight: 79.3795 kg

DRUGS (1)
  1. MENTADENT ADVANCED WHITENING TOOTH PASTE [Suspect]
     Indication: DENTAL DISORDER PROPHYLAXIS
     Dosage: DAB ON TOOTHBRUSH 3-4 TIMES ORAL
     Route: 048
     Dates: start: 20120126, end: 20120203

REACTIONS (4)
  - ORAL MUCOSAL ERYTHEMA [None]
  - OEDEMA MOUTH [None]
  - CHEILITIS [None]
  - LIP SWELLING [None]
